FAERS Safety Report 25545042 (Version 1)
Quarter: 2025Q3

REPORT INFORMATION
  Report Type: Spontaneous
  Country: US (occurrence: US)
  Receive Date: 20250711
  Receipt Date: 20250711
  Transmission Date: 20251021
  Serious: Yes (Other)
  Sender: AMGEN
  Company Number: US-AMGEN-USASP2025132763

PATIENT

DRUGS (5)
  1. BEVACIZUMAB [Suspect]
     Active Substance: BEVACIZUMAB
     Indication: Colorectal cancer metastatic
     Route: 065
  2. PANITUMUMAB [Suspect]
     Active Substance: PANITUMUMAB
     Indication: Colorectal cancer metastatic
     Route: 065
  3. REGORAFENIB [Concomitant]
     Active Substance: REGORAFENIB
  4. TRIFLURIDINE [Concomitant]
     Active Substance: TRIFLURIDINE
  5. TIPIRACIL [Concomitant]
     Active Substance: TIPIRACIL

REACTIONS (11)
  - Colorectal cancer metastatic [Unknown]
  - Metastases to lymph nodes [Unknown]
  - Metastases to liver [Unknown]
  - Metastases to lung [Unknown]
  - Metastases to adrenals [Unknown]
  - Metastases to peritoneum [Unknown]
  - Metastases to bone [Unknown]
  - Metastases to central nervous system [Unknown]
  - Metastases to pleura [Unknown]
  - Metastasis [Unknown]
  - Adverse event [Unknown]
